FAERS Safety Report 4304667-8 (Version None)
Quarter: 2004Q1

REPORT INFORMATION
  Report Type: 
  Country: None (occurrence: None)
  Receive Date: 20040226
  Receipt Date: 20031112
  Transmission Date: 20041129
  Serious: No
  Sender: FDA-Public Use
  Company Number: US-GLAXOSMITHKLINE-A0439435A

PATIENT
  Age: 52 Year
  Sex: Female

DRUGS (5)
  1. WELLBUTRIN [Suspect]
     Indication: DEPRESSION
     Dosage: 300MG PER DAY
     Route: 048
  2. HORMONE PILL [Concomitant]
  3. MULTI-VITAMIN [Concomitant]
  4. CALCIUM [Concomitant]
  5. VITAMIN C [Concomitant]

REACTIONS (2)
  - EAR PAIN [None]
  - OEDEMA PERIPHERAL [None]
